FAERS Safety Report 18848962 (Version 1)
Quarter: 2021Q1

REPORT INFORMATION
  Report Type: Spontaneous
  Country: US (occurrence: US)
  Receive Date: 20210204
  Receipt Date: 20210204
  Transmission Date: 20210419
  Serious: No
  Sender: FDA-Public Use
  Company Number: US-BIOMARINAP-US-2021-134447

PATIENT
  Age: 21 Year
  Sex: Female
  Weight: 60 kg

DRUGS (1)
  1. PALYNZIQ [Suspect]
     Active Substance: PEGVALIASE-PQPZ
     Indication: PHENYLKETONURIA
     Dosage: 2.5 MILLIGRAM, QW
     Route: 058
     Dates: start: 20201231

REACTIONS (1)
  - Injection site rash [Recovering/Resolving]

NARRATIVE: CASE EVENT DATE: 20210110
